FAERS Safety Report 12184223 (Version 1)
Quarter: 2016Q1

REPORT INFORMATION
  Report Type: Spontaneous
  Country: US (occurrence: None)
  Receive Date: 20160315
  Receipt Date: 20160315
  Transmission Date: 20160526
  Serious: Yes (Life-Threatening, Hospitalization)
  Sender: FDA-Public Use
  Company Number: None

PATIENT
  Age: 45 Year
  Sex: Female
  Weight: 79.7 kg

DRUGS (6)
  1. SERTRALINE [Concomitant]
     Active Substance: SERTRALINE HYDROCHLORIDE
  2. GABAPETIN [Concomitant]
     Active Substance: GABAPENTIN
  3. LAMOTRIGINE. [Concomitant]
     Active Substance: LAMOTRIGINE
  4. DAPSONE. [Suspect]
     Active Substance: DAPSONE
     Indication: PSORIASIS
     Dates: start: 20160208, end: 20160217
  5. MIRENA [Concomitant]
     Active Substance: LEVONORGESTREL
  6. TRAZODONE [Concomitant]
     Active Substance: TRAZODONE HYDROCHLORIDE

REACTIONS (5)
  - Asthenia [None]
  - Cyanosis [None]
  - Oxygen saturation decreased [None]
  - Gait disturbance [None]
  - Blood methaemoglobin present [None]

NARRATIVE: CASE EVENT DATE: 20160217
